FAERS Safety Report 20154708 (Version 1)
Quarter: 2021Q4

REPORT INFORMATION
  Report Type: Spontaneous
  Country: PT (occurrence: PT)
  Receive Date: 20211207
  Receipt Date: 20211207
  Transmission Date: 20220303
  Serious: Yes (Hospitalization, Other)
  Sender: FDA-Public Use
  Company Number: PT-DENTSPLY-2021SCDP000352

PATIENT
  Age: 55 Year
  Sex: Female

DRUGS (2)
  1. MEPIVACAINE [Suspect]
     Active Substance: MEPIVACAINE HYDROCHLORIDE
     Indication: Nerve block
     Dosage: 200 MILLIGRAM
  2. LEVOBUPIVACAINE [Suspect]
     Active Substance: LEVOBUPIVACAINE
     Indication: Nerve block
     Dosage: 37.5 MILLIGRAM

REACTIONS (10)
  - Bradycardia [Recovered/Resolved]
  - Hypertension [Recovered/Resolved]
  - Agitation [Recovered/Resolved]
  - Hypoaesthesia oral [Recovered/Resolved]
  - Lethargy [Recovered/Resolved]
  - Discomfort [Recovered/Resolved]
  - Dysgeusia [Recovered/Resolved]
  - Hyporesponsive to stimuli [Recovered/Resolved]
  - Local anaesthetic systemic toxicity [Recovered/Resolved]
  - Vision blurred [Recovered/Resolved]
